FAERS Safety Report 4307678-1 (Version None)
Quarter: 2004Q1

REPORT INFORMATION
  Report Type: 
  Country: None (occurrence: None)
  Receive Date: 20040225
  Receipt Date: 20030923
  Transmission Date: 20041129
  Serious: Yes (Hospitalization)
  Sender: FDA-Public Use
  Company Number: WAES 0309USA02404

PATIENT
  Age: 43 Year
  Sex: Female

DRUGS (7)
  1. ZOCOR [Suspect]
     Indication: HYPERLIPIDAEMIA
     Dosage: 80 MG/HS/PO
     Route: 048
     Dates: end: 20021010
  2. ALTACE [Concomitant]
  3. GLUCOPHAGE [Concomitant]
  4. MACROBID [Concomitant]
  5. NEXIUM [Concomitant]
  6. CIPROFLOXACIN [Concomitant]
  7. INSULIN [Concomitant]

REACTIONS (3)
  - RENAL FAILURE ACUTE [None]
  - RHABDOMYOLYSIS [None]
  - URINARY TRACT INFECTION [None]
